FAERS Safety Report 4374421-X (Version None)
Quarter: 2004Q2

REPORT INFORMATION
  Report Type: 
  Country: None (occurrence: None)
  Receive Date: 20040603
  Receipt Date: 20040513
  Transmission Date: 20050107
  Serious: Yes (Other)
  Sender: FDA-Public Use
  Company Number: JP_040503144

PATIENT
  Age: 79 Year
  Sex: Male
  Weight: 61 kg

DRUGS (7)
  1. GEMZAR [Suspect]
     Indication: LUNG NEOPLASM MALIGNANT
     Dosage: 1670 MG OTHER
     Route: 050
     Dates: start: 20040119, end: 20040209
  2. NAVELBINE [Concomitant]
  3. MAXIPIME [Concomitant]
  4. SELBEX (TEPRENONE) [Concomitant]
  5. MOBIC [Concomitant]
  6. FERROMIA (FERROUS CITRATE) [Concomitant]
  7. LOXOPROFEN SODIUM [Concomitant]

REACTIONS (1)
  - INTERSTITIAL LUNG DISEASE [None]
